FAERS Safety Report 6517244-5 (Version None)
Quarter: 2009Q4

REPORT INFORMATION
  Report Type: 
  Country: None (occurrence: None)
  Receive Date: 20091217
  Receipt Date: 20081223
  Transmission Date: 20100525
  Serious: Yes (Other)
  Sender: FDA-Public Use
  Company Number: 55578

PATIENT
  Age: 61 Year
  Sex: Male
  Weight: 103 kg

DRUGS (1)
  1. CISPLATIN [Suspect]
     Indication: NEOPLASM MALIGNANT
     Dosage: 150MG/IV
     Route: 042
     Dates: start: 20081216

REACTIONS (1)
  - THROMBOSIS [None]
